FAERS Safety Report 8235281-X (Version None)
Quarter: 2012Q1

REPORT INFORMATION
  Report Type: 
  Country: None (occurrence: None)
  Receive Date: 20120326
  Receipt Date: 20120319
  Transmission Date: 20120608
  Serious: Yes (Hospitalization, Other)
  Sender: FDA-Public Use
  Company Number: US-ABBOTT-12P-163-0899584-00

PATIENT
  Sex: Female
  Weight: 98.518 kg

DRUGS (1)
  1. HUMIRA [Suspect]
     Indication: RHEUMATOID ARTHRITIS
     Route: 058
     Dates: start: 20110801

REACTIONS (3)
  - SINUS DISORDER [None]
  - SINUSITIS BACTERIAL [None]
  - NASOPHARYNGITIS [None]
